FAERS Safety Report 8264617-9 (Version None)
Quarter: 2012Q2

REPORT INFORMATION
  Report Type: 
  Country: None (occurrence: None)
  Receive Date: 20120403
  Receipt Date: 20120322
  Transmission Date: 20120825
  Serious: Yes (Hospitalization)
  Sender: FDA-Public Use
  Company Number: DSU-2012-02303

PATIENT
  Age: 72 Year
  Sex: Female
  Weight: 74.3899 kg

DRUGS (8)
  1. WELCHOL [Suspect]
     Indication: HYPERCHOLESTEROLAEMIA
     Dosage: 1875 MG (1875 MG, QD), PER ORAL, 3750 MG (1250 MG, TID), PER ORAL
     Route: 048
     Dates: start: 20100101, end: 20111001
  2. WELCHOL [Suspect]
     Indication: HYPERCHOLESTEROLAEMIA
     Dosage: 1875 MG (1875 MG, QD), PER ORAL, 3750 MG (1250 MG, TID), PER ORAL
     Route: 048
     Dates: start: 20111001
  3. NEURONTIN [Concomitant]
  4. VITAMIN D (VITAMIN D AND ANALOGUES) [Concomitant]
  5. ZETIA [Concomitant]
  6. LOSARTAN (LOSARTAN) (LOSARTAN) [Concomitant]
  7. ESTRADIOL [Concomitant]
  8. NIASPAN (NICOTINIC ACID) (NICOTINIC ACID) [Concomitant]

REACTIONS (6)
  - HIP ARTHROPLASTY [None]
  - DIZZINESS [None]
  - FEMUR FRACTURE [None]
  - DISCOMFORT [None]
  - DYSPHAGIA [None]
  - ANXIETY [None]
